FAERS Safety Report 4554683-6 (Version None)
Quarter: 2005Q1

REPORT INFORMATION
  Report Type: 
  Country: None (occurrence: None)
  Receive Date: 20050118
  Receipt Date: 20050106
  Transmission Date: 20050727
  Serious: Yes (Hospitalization, Other)
  Sender: FDA-Public Use
  Company Number: US-GLAXOSMITHKLINE-A0539641A

PATIENT
  Age: 72 Year
  Sex: Female
  Weight: 97.7 kg

DRUGS (6)
  1. NICORETTE [Suspect]
     Route: 048
     Dates: start: 19900101
  2. NEXIUM [Concomitant]
     Route: 048
  3. LIPITOR [Concomitant]
     Indication: BLOOD CHOLESTEROL INCREASED
     Route: 048
  4. DIOVAN [Concomitant]
     Route: 048
  5. ALLOPURINOL [Concomitant]
     Indication: GOUT
     Route: 048
  6. ULTRACET [Concomitant]
     Indication: ARTHRITIS
     Route: 048

REACTIONS (18)
  - CARDIAC FAILURE CONGESTIVE [None]
  - CEREBROVASCULAR ACCIDENT [None]
  - DIZZINESS [None]
  - DRUG ABUSER [None]
  - EMOTIONAL DISTRESS [None]
  - EYE HAEMORRHAGE [None]
  - EYE PAIN [None]
  - FALL [None]
  - HEADACHE [None]
  - LOSS OF CONSCIOUSNESS [None]
  - NERVOUSNESS [None]
  - NEUROPATHY PERIPHERAL [None]
  - PARAESTHESIA [None]
  - RETINAL DETACHMENT [None]
  - SALIVARY HYPERSECRETION [None]
  - STRESS [None]
  - THROMBOSIS [None]
  - TREMOR [None]
